FAERS Safety Report 9303644 (Version 2)
Quarter: 2013Q2

REPORT INFORMATION
  Report Type: Spontaneous
  Country: US (occurrence: US)
  Receive Date: 20130522
  Receipt Date: 20130603
  Transmission Date: 20140414
  Serious: Yes (Other)
  Sender: FDA-Public Use
  Company Number: US-BAYER-2013-063309

PATIENT
  Age: 63 Year
  Sex: Female

DRUGS (17)
  1. XARELTO [Suspect]
     Indication: CEREBROVASCULAR ACCIDENT PROPHYLAXIS
     Route: 048
  2. XARELTO [Interacting]
     Indication: ATRIAL FIBRILLATION
     Dosage: DAILY DOSE 20 MG
     Route: 048
     Dates: start: 201304
  3. XARELTO [Interacting]
     Indication: CEREBROVASCULAR ACCIDENT PROPHYLAXIS
  4. XARELTO [Interacting]
     Indication: CEREBROVASCULAR ACCIDENT PROPHYLAXIS
  5. XARELTO [Interacting]
     Indication: CEREBROVASCULAR ACCIDENT PROPHYLAXIS
  6. XARELTO [Interacting]
     Indication: CEREBROVASCULAR ACCIDENT PROPHYLAXIS
  7. ACETYLSALICYLIC ACID [Interacting]
     Route: 065
  8. AMIODARONE [Concomitant]
     Route: 065
  9. AMIODARONE [Concomitant]
  10. METOLAZONE [Concomitant]
     Route: 065
  11. METOLAZONE [Concomitant]
  12. LOSARTAN POTASSIUM [Concomitant]
     Route: 065
  13. LOSARTAN POTASSIUM [Concomitant]
  14. COREG [Concomitant]
     Route: 065
  15. COREG [Concomitant]
  16. ZETIA [Concomitant]
     Route: 065
  17. ZETIA [Concomitant]

REACTIONS (9)
  - Glomerular filtration rate decreased [Unknown]
  - International normalised ratio increased [Unknown]
  - Hepatitis [Unknown]
  - Hyperbilirubinaemia [Unknown]
  - Activated partial thromboplastin time prolonged [Unknown]
  - Aspartate aminotransferase increased [Unknown]
  - Alanine aminotransferase increased [Unknown]
  - Blood lactate dehydrogenase increased [Unknown]
  - Gastrointestinal haemorrhage [Unknown]
